FAERS Safety Report 5646340-X (Version None)
Quarter: 2008Q1

REPORT INFORMATION
  Report Type: 
  Country: None (occurrence: None)
  Receive Date: 20080227
  Receipt Date: 20080218
  Transmission Date: 20080703
  Serious: Yes (Hospitalization)
  Sender: FDA-Public Use
  Company Number: DSA_31466_2008

PATIENT
  Age: 82 Year
  Sex: Male

DRUGS (8)
  1. ENALAPRIL (ENALAPRIL) 5 MG [Suspect]
     Indication: DRUG USE FOR UNKNOWN INDICATION
     Dosage: 5 MG QD ORAL
     Route: 048
     Dates: end: 20071125
  2. TRAMADOL HCL [Concomitant]
  3. METOPROLOL TARTRATE [Concomitant]
  4. SIMVASTATIN ACTAVIS [Concomitant]
  5. NITROMEX [Concomitant]
  6. ACETAMINOPHEN [Concomitant]
  7. IMPUGAN [Concomitant]
  8. SPIRONOLACTONE [Concomitant]

REACTIONS (3)
  - DIZZINESS [None]
  - FALL [None]
  - ORTHOSTATIC HYPOTENSION [None]
